FAERS Safety Report 22605882 (Version 2)
Quarter: 2023Q2

REPORT INFORMATION
  Report Type: Spontaneous
  Country: US (occurrence: US)
  Receive Date: 20230615
  Receipt Date: 20230620
  Transmission Date: 20230721
  Serious: Yes (Hospitalization, Other)
  Sender: FDA-Public Use
  Company Number: US-SA-SAC20230615000117

PATIENT
  Sex: Male

DRUGS (4)
  1. ELOCTATE [Suspect]
     Active Substance: EFMOROCTOCOG ALFA
     Indication: Factor VIII deficiency
     Dosage: 2000 U (+/-10%)
     Route: 042
  2. ELOCTATE [Suspect]
     Active Substance: EFMOROCTOCOG ALFA
     Indication: Factor VIII deficiency
     Dosage: 2000 U (+/-10%)
     Route: 042
  3. ELOCTATE [Suspect]
     Active Substance: EFMOROCTOCOG ALFA
     Dosage: 2016 U (INFUSE ONE VIAL OF 1500 UNITS AND ONE VIAL OF 516 UNITS), Q3D
     Route: 042
  4. ELOCTATE [Suspect]
     Active Substance: EFMOROCTOCOG ALFA
     Dosage: 2016 U (INFUSE ONE VIAL OF 1500 UNITS AND ONE VIAL OF 516 UNITS), Q3D
     Route: 042

REACTIONS (3)
  - Haemorrhage [Unknown]
  - Traumatic haemorrhage [Recovered/Resolved]
  - Muscle strain [Recovered/Resolved]
